FAERS Safety Report 23432803 (Version 1)
Quarter: 2024Q1

REPORT INFORMATION
  Report Type: Spontaneous
  Country: IT (occurrence: IT)
  Receive Date: 20240123
  Receipt Date: 20240123
  Transmission Date: 20240410
  Serious: Yes (Disabling)
  Sender: FDA-Public Use
  Company Number: IT-AMGEN-ITASP2023222335

PATIENT
  Age: 74 Year
  Sex: Male
  Weight: 95 kg

DRUGS (1)
  1. XGEVA [Suspect]
     Active Substance: DENOSUMAB
     Indication: Metastases to bone
     Dosage: 120 MILLIGRAM
     Route: 058
     Dates: start: 20230418, end: 20230828

REACTIONS (3)
  - Tooth agenesis [Not Recovered/Not Resolved]
  - Osteitis [Not Recovered/Not Resolved]
  - Dental operation [Not Recovered/Not Resolved]

NARRATIVE: CASE EVENT DATE: 20231015
